FAERS Safety Report 6177488-1 (Version None)
Quarter: 2009Q2

REPORT INFORMATION
  Report Type: 
  Country: None (occurrence: None)
  Receive Date: 20090504
  Receipt Date: 20090430
  Transmission Date: 20091009
  Serious: Yes (Life-Threatening, Other)
  Sender: FDA-Public Use
  Company Number: PHEH2009US02001

PATIENT
  Sex: Female

DRUGS (2)
  1. SANDOSTATIN [Suspect]
     Dosage: 150 MCG ONCE/SINGLE
     Route: 042
     Dates: start: 20090221, end: 20090221
  2. SANDOSTATIN [Suspect]
     Dosage: 150 MCG, QD
     Route: 058

REACTIONS (3)
  - FEELING ABNORMAL [None]
  - FLUSHING [None]
  - INCORRECT ROUTE OF DRUG ADMINISTRATION [None]
